FAERS Safety Report 10302795 (Version 5)
Quarter: 2015Q2

REPORT INFORMATION
  Report Type: Report from Study
  Country: RU (occurrence: RU)
  Receive Date: 20140714
  Receipt Date: 20150526
  Transmission Date: 20150821
  Serious: Yes (Hospitalization, Other)
  Sender: FDA-Public Use
  Company Number: RU-GLAXOSMITHKLINE-B0828270C

PATIENT
  Age: 72 Year
  Sex: Male
  Weight: 86 kg

DRUGS (16)
  1. AMLODIPIN [Concomitant]
     Active Substance: AMLODIPINE BESYLATE
     Indication: HYPERTENSION
  2. CLOPIDOGREL [Concomitant]
     Active Substance: CLOPIDOGREL BISULFATE
     Indication: ANGINA PECTORIS
     Dosage: 75 MG, OD
     Route: 048
     Dates: start: 20140315
  3. FAMOTIDIN [Concomitant]
     Indication: PROPHYLAXIS AGAINST GASTROINTESTINAL ULCER
  4. ACETYLSALICYLIC ACID [Concomitant]
     Active Substance: ASPIRIN
     Indication: MYOCARDIAL ISCHAEMIA
  5. FLUTICASONE FUROATE + VILANTEROL TRIFENATATE [Suspect]
     Active Substance: FLUTICASONE FUROATE\VILANTEROL TRIFENATATE
     Indication: CHRONIC OBSTRUCTIVE PULMONARY DISEASE
     Dosage: 100/25 MCG
     Route: 055
     Dates: start: 20120420, end: 20140709
  6. NEBIVOLOL [Concomitant]
     Active Substance: NEBIVOLOL
     Indication: MYOCARDIAL ISCHAEMIA
     Dosage: 2.5 MG, OD
     Route: 048
     Dates: start: 20121002
  7. LOSARTAN [Concomitant]
     Active Substance: LOSARTAN
     Indication: MYOCARDIAL ISCHAEMIA
     Dosage: 100 MG, OD
     Route: 048
     Dates: start: 20121002
  8. FAMOTIDIN [Concomitant]
     Indication: PROPHYLAXIS AGAINST GASTROINTESTINAL ULCER
     Dosage: 40 MG, OD
     Route: 048
     Dates: start: 20140315
  9. ACETYLSALICYLIC ACID [Concomitant]
     Active Substance: ASPIRIN
     Indication: MYOCARDIAL ISCHAEMIA
     Dosage: 100 MG, OD
     Route: 048
     Dates: start: 20090120
  10. ACTRAPID [Concomitant]
     Active Substance: INSULIN HUMAN
     Indication: DIABETES MELLITUS
     Dosage: 4 U, Q6H
     Route: 058
     Dates: start: 20140315
  11. ATORVASTATIN [Concomitant]
     Active Substance: ATORVASTATIN
     Indication: MYOCARDIAL INFARCTION
     Dosage: 20 MG, OD
     Route: 048
     Dates: start: 20120828, end: 20140709
  12. NEBIVOLOL [Concomitant]
     Active Substance: NEBIVOLOL
     Indication: MYOCARDIAL ISCHAEMIA
  13. METFORMIN [Concomitant]
     Active Substance: METFORMIN HYDROCHLORIDE
     Indication: DIABETES MELLITUS
     Dosage: 1000 MG, Q12H
     Route: 048
     Dates: start: 20140324
  14. ATORVASTATIN [Concomitant]
     Active Substance: ATORVASTATIN
     Indication: MYOCARDIAL INFARCTION
  15. AMIODARONE [Concomitant]
     Active Substance: AMIODARONE
     Indication: ATRIAL FIBRILLATION
     Dosage: 200 MG, OD
     Route: 048
     Dates: start: 20121002
  16. AMLODIPIN [Concomitant]
     Active Substance: AMLODIPINE BESYLATE
     Indication: HYPERTENSION
     Dosage: 5 MG, Q12H
     Route: 048
     Dates: start: 20130415

REACTIONS (1)
  - Chronic hepatitis [Recovered/Resolved]

NARRATIVE: CASE EVENT DATE: 20140621
